FAERS Safety Report 10906660 (Version 1)
Quarter: 2015Q1

REPORT INFORMATION
  Report Type: Spontaneous
  Country: US (occurrence: US)
  Receive Date: 20150312
  Receipt Date: 20150312
  Transmission Date: 20150721
  Serious: Yes (Other)
  Sender: FDA-Public Use
  Company Number: US-BIOGENIDEC-2015BI031650

PATIENT
  Sex: Female

DRUGS (1)
  1. TYSABRI [Suspect]
     Active Substance: NATALIZUMAB
     Indication: PRODUCT USED FOR UNKNOWN INDICATION
     Route: 042
     Dates: end: 201501

REACTIONS (5)
  - Delayed recovery from anaesthesia [Unknown]
  - Jaundice [Unknown]
  - Cholecystectomy [Unknown]
  - Hepatic enzyme increased [Unknown]
  - Bile duct stone [Unknown]
